FAERS Safety Report 9779423 (Version 2)
Quarter: 2014Q1

REPORT INFORMATION
  Report Type: Spontaneous
  Country: VE (occurrence: VE)
  Receive Date: 20131223
  Receipt Date: 20140210
  Transmission Date: 20141002
  Serious: Yes (Other)
  Sender: FDA-Public Use
  Company Number: VE-PFIZER INC-2013363961

PATIENT
  Age: 81 Year
  Sex: Female

DRUGS (1)
  1. LIPITOR [Suspect]
     Dosage: 40 MG, 1X/DAY

REACTIONS (4)
  - Intervertebral disc protrusion [Not Recovered/Not Resolved]
  - Cardiac disorder [Not Recovered/Not Resolved]
  - Pain [Not Recovered/Not Resolved]
  - Limb discomfort [Not Recovered/Not Resolved]
